FAERS Safety Report 18306819 (Version 1)
Quarter: 2020Q3

REPORT INFORMATION
  Report Type: Spontaneous
  Country: US (occurrence: US)
  Receive Date: 20200923
  Receipt Date: 20200923
  Transmission Date: 20201103
  Serious: Yes (Hospitalization)
  Sender: FDA-Public Use
  Company Number: None

PATIENT
  Sex: Female

DRUGS (15)
  1. NYSTATIN. [Suspect]
     Active Substance: NYSTATIN
  2. DEXAMETHASON [Suspect]
     Active Substance: DEXAMETHASONE
  3. IPRATROPIUM/SOL ALBUTER [Concomitant]
  4. LETROZOLE. [Suspect]
     Active Substance: LETROZOLE
  5. BENZONATATE. [Suspect]
     Active Substance: BENZONATATE
  6. CITALOPRAM [Suspect]
     Active Substance: CITALOPRAM HYDROBROMIDE
  7. HYDROXYZ HCL [Suspect]
     Active Substance: HYDROXYZINE HYDROCHLORIDE
  8. OMEPRAZOLE. [Suspect]
     Active Substance: OMEPRAZOLE
  9. ALBUTEROL AER [Suspect]
     Active Substance: ALBUTEROL
  10. LORAZEPAM. [Suspect]
     Active Substance: LORAZEPAM
  11. AMOX/K CLAV [Suspect]
     Active Substance: AMOXICILLIN\CLAVULANATE POTASSIUM
  12. ZOLPIDEM [Suspect]
     Active Substance: ZOLPIDEM TARTRATE
  13. KISQALI [Suspect]
     Active Substance: RIBOCICLIB
     Indication: MALIGNANT NIPPLE NEOPLASM FEMALE
     Dosage: ?          OTHER DOSE:3 TABS;OTHER ROUTE:PO?21 D ON AND 7 D OFF?
     Dates: start: 20200703
  14. CHANTIX [Suspect]
     Active Substance: VARENICLINE TARTRATE
  15. PREDNISONE. [Suspect]
     Active Substance: PREDNISONE

REACTIONS (3)
  - Pulmonary oedema [None]
  - Dyspnoea [None]
  - Lung disorder [None]
